FAERS Safety Report 10283902 (Version 2)
Quarter: 2014Q4

REPORT INFORMATION
  Report Type: Spontaneous
  Country: IT (occurrence: IT)
  Receive Date: 20140708
  Receipt Date: 20141001
  Transmission Date: 20150528
  Serious: Yes (Hospitalization, Other)
  Sender: FDA-Public Use
  Company Number: IT-TEVA-492738ISR

PATIENT
  Age: 45 Year
  Sex: Female

DRUGS (3)
  1. SYNFLEX - 275 MG CAPSULE RIGIDE - RECORDATI INDUSTRIA CHIMICA [Suspect]
     Active Substance: NAPROXEN SODIUM
     Indication: DRUG ABUSE
     Dosage: 2 DOSAGE FORMS DAILY;
     Route: 048
     Dates: start: 20140628, end: 20140628
  2. DICLOFENAC [Suspect]
     Active Substance: DICLOFENAC
     Indication: DRUG ABUSE
     Dosage: 10 DOSAGE FORMS DAILY;
     Route: 049
     Dates: start: 20140628, end: 20140628
  3. DIETARY SUPPLEMENT [Suspect]
     Active Substance: DIETARY SUPPLEMENT
     Indication: DRUG ABUSE
     Dates: start: 20140628, end: 20140628

REACTIONS (2)
  - Drug abuse [Recovering/Resolving]
  - Abdominal pain upper [Recovering/Resolving]

NARRATIVE: CASE EVENT DATE: 20140628
